FAERS Safety Report 5942999-8 (Version None)
Quarter: 2008Q4

REPORT INFORMATION
  Report Type: 
  Country: None (occurrence: None)
  Receive Date: 20081103
  Receipt Date: 20081024
  Transmission Date: 20090506
  Serious: Yes (Other)
  Sender: FDA-Public Use
  Company Number: 20429

PATIENT
  Sex: Male

DRUGS (3)
  1. PACLITAXEL [Suspect]
  2. BENADRYL [Concomitant]
  3. DEXAMETHASONE [Concomitant]

REACTIONS (5)
  - BONE PAIN [None]
  - FLUSHING [None]
  - PAIN [None]
  - PELVIC PAIN [None]
  - TACHYCARDIA [None]
